FAERS Safety Report 4662090-0 (Version None)
Quarter: 2005Q2

REPORT INFORMATION
  Report Type: 
  Country: None (occurrence: None)
  Receive Date: 20050512
  Receipt Date: 20050505
  Transmission Date: 20051028
  Serious: Yes (Death)
  Sender: FDA-Public Use
  Company Number: 2005-127968-NL

PATIENT
  Age: 15 Year
  Sex: Male
  Weight: 33.6 kg

DRUGS (4)
  1. REMERON SOLTAB [Suspect]
     Indication: APPETITE DISORDER
     Dosage: 30 MG DAILY ORAL
     Route: 048
     Dates: start: 20021101
  2. REMERON SOLTAB [Suspect]
     Indication: APPETITE DISORDER
     Dosage: 45 MG DAILY ORAL
     Route: 048
     Dates: start: 20020101, end: 20020101
  3. REMERON SOLTAB [Suspect]
     Indication: APPETITE DISORDER
     Dosage: 50 MG DAILY ORAL
     Route: 048
     Dates: start: 20020101, end: 20030316
  4. SYNTHROID [Concomitant]

REACTIONS (11)
  - ABNORMAL BEHAVIOUR [None]
  - BLOOD TESTOSTERONE DECREASED [None]
  - COMPLETED SUICIDE [None]
  - CONVULSION [None]
  - DEPRESSED MOOD [None]
  - EATING DISORDER [None]
  - FEELING ABNORMAL [None]
  - IMPULSE-CONTROL DISORDER [None]
  - INJURY ASPHYXIATION [None]
  - SOCIAL AVOIDANT BEHAVIOUR [None]
  - WEIGHT DECREASED [None]
